FAERS Safety Report 9506173 (Version 1)
Quarter: 2013Q1

REPORT INFORMATION
  Report Type: Spontaneous
  Country: US (occurrence: None)
  Receive Date: 20130305
  Receipt Date: 20130305
  Transmission Date: 20140127
  Serious: Yes (Other)
  Sender: FDA-Public Use
  Company Number: 163-21880-12091433

PATIENT
  Age: 77 Year
  Sex: Female

DRUGS (6)
  1. REVLIMID [Suspect]
     Indication: PLASMA CELL MYELOMA
     Dosage: 21 IN 28 D
     Route: 048
     Dates: start: 20120104, end: 2012
  2. AREDIASOLR [Concomitant]
  3. METHADOSE [Concomitant]
  4. DEXAMETHASONE [Concomitant]
  5. DURAGESIC [Concomitant]
  6. CALCIUM CARBONATE-VITMAIN D [Concomitant]

REACTIONS (3)
  - Drug dose omission [None]
  - Bronchitis [None]
  - Full blood count decreased [None]
